FAERS Safety Report 11172995 (Version 3)
Quarter: 2015Q3

REPORT INFORMATION
  Report Type: Report from Study
  Country: FR (occurrence: FR)
  Receive Date: 20150608
  Receipt Date: 20150724
  Transmission Date: 20151125
  Serious: Yes (Life-Threatening, Hospitalization)
  Sender: FDA-Public Use
  Company Number: FR-SA-2015SA080244

PATIENT
  Age: 47 Year
  Sex: Male

DRUGS (2)
  1. JEVTANA [Suspect]
     Active Substance: CABAZITAXEL
     Indication: TESTICULAR GERM CELL CANCER METASTATIC
     Route: 042
     Dates: start: 20150213, end: 20150213
  2. JEVTANA [Suspect]
     Active Substance: CABAZITAXEL
     Indication: TESTICULAR GERM CELL CANCER METASTATIC
     Route: 042
     Dates: start: 20150424, end: 20150424

REACTIONS (5)
  - Abdominal wall abscess [Recovered/Resolved]
  - Febrile bone marrow aplasia [Recovered/Resolved]
  - Intra-abdominal haematoma [Recovered/Resolved]
  - Infectious colitis [Recovered/Resolved]
  - Large intestine perforation [Recovered/Resolved]

NARRATIVE: CASE EVENT DATE: 20150505
